FAERS Safety Report 17218233 (Version 2)
Quarter: 2020Q1

REPORT INFORMATION
  Report Type: Spontaneous
  Country: FR (occurrence: FR)
  Receive Date: 20191231
  Receipt Date: 20200208
  Transmission Date: 20200409
  Serious: Yes (Other)
  Sender: FDA-Public Use
  Company Number: FR-ROCHE-2502868

PATIENT
  Age: 50 Year
  Sex: Male

DRUGS (3)
  1. IBUPROFENE [Suspect]
     Active Substance: IBUPROFEN
     Indication: PAIN
     Dosage: POSOLOGIE NON CONUE MAIS FORTES DOSES?MOST RECENT DOSE PRIOR TO AE 20/OCT/2019
     Route: 048
     Dates: start: 20191016
  2. CODEINE [Suspect]
     Active Substance: CODEINE
     Indication: PAIN
     Dosage: POSOLOGIE NON CONNUE?MOST RECENT DOSE PRIOR TO AE 20/OCT/2019
     Route: 048
     Dates: start: 20191019
  3. DIAZEPAM. [Suspect]
     Active Substance: DIAZEPAM
     Indication: PAIN
     Dosage: MOST RECENT DOSE PRIOR TO AE 24/OCT/2019
     Route: 048
     Dates: start: 20191021

REACTIONS (1)
  - Cholestasis [Recovering/Resolving]

NARRATIVE: CASE EVENT DATE: 20191023
